FAERS Safety Report 11498048 (Version 3)
Quarter: 2019Q3

REPORT INFORMATION
  Report Type: Spontaneous
  Country: US (occurrence: US)
  Receive Date: 20150911
  Receipt Date: 20190731
  Transmission Date: 20191004
  Serious: Yes (Death, Congenital Anomaly, Other)
  Sender: FDA-Public Use
  Company Number: US-APOTEX-2015AP012527

PATIENT
  Age: 0 Day
  Sex: Male
  Weight: 3 kg

DRUGS (1)
  1. PAXIL [Suspect]
     Active Substance: PAROXETINE HYDROCHLORIDE
     Indication: DEPRESSION
     Dosage: UNK
     Route: 064
     Dates: start: 199501, end: 199906

REACTIONS (20)
  - Cardiopulmonary failure [Fatal]
  - Apgar score low [Unknown]
  - Cyanosis [Unknown]
  - Newborn persistent pulmonary hypertension [Fatal]
  - Bradycardia [Unknown]
  - Thrombocytopenia [Fatal]
  - Heart disease congenital [Unknown]
  - Failure to thrive [Fatal]
  - Congenital mitral valve incompetence [Unknown]
  - Foetal exposure during pregnancy [Unknown]
  - Intraventricular haemorrhage [Unknown]
  - Hypotension [Unknown]
  - Congenital tricuspid valve incompetence [Unknown]
  - Transposition of the great vessels [Fatal]
  - Patent ductus arteriosus [Unknown]
  - Cardiac failure [Fatal]
  - Neonatal asphyxia [Unknown]
  - Apnoea [Unknown]
  - Atrial septal defect [Unknown]
  - Depression [Unknown]

NARRATIVE: CASE EVENT DATE: 19991202
